FAERS Safety Report 8013913-9 (Version None)
Quarter: 2011Q4

REPORT INFORMATION
  Report Type: 
  Country: None (occurrence: None)
  Receive Date: 20111229
  Receipt Date: 20111222
  Transmission Date: 20120403
  Serious: Yes (Other)
  Sender: FDA-Public Use
  Company Number: IE-BAYER-2011-122347

PATIENT
  Sex: Female

DRUGS (1)
  1. NAPROXEN SODIUM [Suspect]
     Indication: ARTHRITIS
     Dosage: 250 MG, BID
     Route: 048
     Dates: start: 20111214, end: 20111216

REACTIONS (2)
  - RASH [None]
  - ABDOMINAL PAIN UPPER [None]
